FAERS Safety Report 9848861 (Version 2)
Quarter: 2014Q1

REPORT INFORMATION
  Report Type: Spontaneous
  Country: US (occurrence: US)
  Receive Date: 20140128
  Receipt Date: 20140217
  Transmission Date: 20141002
  Serious: Yes (Hospitalization, Other)
  Sender: FDA-Public Use
  Company Number: US-JNJFOC-20140111475

PATIENT
  Age: 58 Year
  Sex: Male

DRUGS (1)
  1. UNSPECIFIED FENTANYL PATCH [Suspect]
     Indication: PAIN
     Route: 062

REACTIONS (6)
  - Withdrawal syndrome [Recovered/Resolved]
  - Thrombosis [Unknown]
  - Unresponsive to stimuli [Recovered/Resolved]
  - Dyspnoea [Recovered/Resolved]
  - Product quality issue [Unknown]
  - Drug diversion [Unknown]
